FAERS Safety Report 7725476-3 (Version None)
Quarter: 2011Q3

REPORT INFORMATION
  Report Type: 
  Country: None (occurrence: None)
  Receive Date: 20110902
  Receipt Date: 20110728
  Transmission Date: 20111222
  Serious: No
  Sender: FDA-Public Use
  Company Number: US-BRISTOL-MYERS SQUIBB COMPANY-15921737

PATIENT
  Age: 53 Year
  Sex: Female
  Weight: 117 kg

DRUGS (1)
  1. KOMBIGLYZE XR [Suspect]
     Dosage: KOMBIGLYZE XR 5/1000 MG LOT#: 0J9014WA + EXP DATE: DEC2011
     Dates: start: 20110101

REACTIONS (1)
  - WEIGHT DECREASED [None]
